FAERS Safety Report 25991020 (Version 1)
Quarter: 2025Q4

REPORT INFORMATION
  Report Type: Spontaneous
  Country: US (occurrence: US)
  Receive Date: 20251103
  Receipt Date: 20251103
  Transmission Date: 20260118
  Serious: No
  Sender: PL DEVELOPMENTS
  Company Number: US-P+L Devolo-2187580

PATIENT

DRUGS (2)
  1. DOCOSANOL [Suspect]
     Active Substance: DOCOSANOL
     Indication: Chapped lips
  2. DOCOSANOL [Suspect]
     Active Substance: DOCOSANOL
     Indication: Lip dry

REACTIONS (3)
  - Application site pain [Unknown]
  - Drug ineffective for unapproved indication [Unknown]
  - Off label use [Unknown]
